FAERS Safety Report 4769001-8 (Version None)
Quarter: 2005Q3

REPORT INFORMATION
  Report Type: 
  Country: None (occurrence: None)
  Receive Date: 20050913
  Receipt Date: 20050902
  Transmission Date: 20060218
  Serious: No
  Sender: FDA-Public Use
  Company Number: 2005124114

PATIENT
  Sex: Female

DRUGS (1)
  1. HYDROCORTISONE SODIUM SUCCINATE [Suspect]
     Indication: BURKITT'S LYMPHOMA

REACTIONS (1)
  - DEATH [None]
